FAERS Safety Report 5463280-X (Version None)
Quarter: 2007Q3

REPORT INFORMATION
  Report Type: 
  Country: None (occurrence: None)
  Receive Date: 20070920
  Receipt Date: 20070919
  Transmission Date: 20080115
  Serious: Yes (Other)
  Sender: FDA-Public Use
  Company Number: US-BRISTOL-MYERS SQUIBB COMPANY-13913793

PATIENT
  Age: 60 Year
  Sex: Female
  Weight: 91 kg

DRUGS (1)
  1. DEFINITY [Suspect]
     Indication: STRESS ECHOCARDIOGRAM
     Dosage: 2 ML OF DEFINITY WAS DILUTED WITH 8ML OF NORMAL SALINE AND ADMINISTERED.
     Route: 040
     Dates: start: 20070919, end: 20070919

REACTIONS (2)
  - DYSPHAGIA [None]
  - PALATAL OEDEMA [None]
